FAERS Safety Report 9112738 (Version 1)
Quarter: 2013Q1

REPORT INFORMATION
  Report Type: Spontaneous
  Country: US (occurrence: US)
  Receive Date: 20130211
  Receipt Date: 20130211
  Transmission Date: 20140127
  Serious: No
  Sender: FDA-Public Use
  Company Number: US-ASTRAZENECA-2013SE07916

PATIENT
  Age: 80 Year
  Sex: Female
  Weight: 67.1 kg

DRUGS (4)
  1. TOPROL XL [Suspect]
     Indication: HEART RATE IRREGULAR
     Route: 048
     Dates: end: 201212
  2. TOPROL XL [Suspect]
     Indication: HEART RATE IRREGULAR
     Dosage: 25MG QAM AND 12.5MG QPM
     Route: 048
     Dates: start: 201212
  3. TOPROL XL [Suspect]
     Indication: HEART RATE IRREGULAR
     Route: 048
  4. NORVASC [Concomitant]
     Indication: BLOOD PRESSURE

REACTIONS (3)
  - Arrhythmia [Unknown]
  - Heart rate irregular [Unknown]
  - Intentional drug misuse [Unknown]
